FAERS Safety Report 20061172 (Version 3)
Quarter: 2022Q1

REPORT INFORMATION
  Report Type: Report from Study
  Country: KR (occurrence: KR)
  Receive Date: 20211112
  Receipt Date: 20220103
  Transmission Date: 20220423
  Serious: Yes (Hospitalization)
  Sender: FDA-Public Use
  Company Number: KR-CELLTRION INC.-2021KR015135

PATIENT

DRUGS (7)
  1. RITUXIMAB [Suspect]
     Active Substance: RITUXIMAB
     Indication: Diffuse large B-cell lymphoma
     Dosage: UNK, CYCLE 1
     Route: 042
     Dates: start: 20210712
  2. RITUXIMAB [Suspect]
     Active Substance: RITUXIMAB
     Dosage: 581.25 MG, CYCLIC (FREQUENCY: 3 WEEKS)
     Route: 042
     Dates: start: 20210719, end: 20211018
  3. RITUXIMAB [Suspect]
     Active Substance: RITUXIMAB
     Dosage: 581.25 MG, CYCLIC (FREQUENCY: 3 WEEKS)
     Route: 042
     Dates: start: 20210719, end: 20211018
  4. RITUXIMAB [Suspect]
     Active Substance: RITUXIMAB
     Dosage: UNK, CYCLE 5
     Dates: start: 20211129
  5. GEMCITABINE [Concomitant]
     Active Substance: GEMCITABINE
  6. CISPLATIN [Concomitant]
     Active Substance: CISPLATIN
  7. DEXAMETHASONE [Concomitant]
     Active Substance: DEXAMETHASONE
     Dosage: UNK
     Dates: start: 20211207

REACTIONS (3)
  - Pulmonary embolism [Recovered/Resolved with Sequelae]
  - Pneumonia [Not Recovered/Not Resolved]
  - Underdose [Unknown]

NARRATIVE: CASE EVENT DATE: 20211026
